FAERS Safety Report 14690305 (Version 1)
Quarter: 2018Q1

REPORT INFORMATION
  Report Type: Spontaneous
  Country: US (occurrence: US)
  Receive Date: 20180328
  Receipt Date: 20180328
  Transmission Date: 20180509
  Serious: Yes (Hospitalization, Other)
  Sender: FDA-Public Use
  Company Number: US-PFIZER INC-2018124056

PATIENT
  Age: 70 Year
  Sex: Female

DRUGS (1)
  1. XELJANZ XR [Suspect]
     Active Substance: TOFACITINIB CITRATE
     Dosage: UNK
     Dates: start: 2013, end: 201803

REACTIONS (4)
  - Mental status changes [Unknown]
  - Diverticulitis [Unknown]
  - Abdominal pain lower [Unknown]
  - Pyrexia [Unknown]

NARRATIVE: CASE EVENT DATE: 201803
